FAERS Safety Report 16242148 (Version 1)
Quarter: 2019Q2

REPORT INFORMATION
  Report Type: Spontaneous
  Country: US (occurrence: US)
  Receive Date: 20190426
  Receipt Date: 20190426
  Transmission Date: 20190711
  Serious: No
  Sender: FDA-Public Use
  Company Number: US-TEVA-2019-US-1039483

PATIENT
  Sex: Male

DRUGS (1)
  1. CARBIDOPA AND LEVODOPA [Suspect]
     Active Substance: CARBIDOPA\LEVODOPA
     Indication: PARKINSON^S DISEASE
     Dosage: 25/100 MG; 1/2 TABLET EVERY 1/2 TO 1 HOURS (A TOTAL OF 10 TABLETS PER DAY)
     Route: 065

REACTIONS (3)
  - Dyskinesia [Unknown]
  - Dystonia [Unknown]
  - Balance disorder [Unknown]
